FAERS Safety Report 13209274 (Version 1)
Quarter: 2017Q1

REPORT INFORMATION
  Report Type: Report from Study
  Country: US (occurrence: US)
  Receive Date: 20170209
  Receipt Date: 20170209
  Transmission Date: 20170428
  Serious: No
  Sender: FDA-Public Use
  Company Number: GXBR2017US000583

PATIENT
  Age: 9 Year
  Sex: Female
  Weight: 18.9 kg

DRUGS (2)
  1. EMLA [Concomitant]
     Active Substance: LIDOCAINE\PRILOCAINE
     Dosage: UNK DF, UNK
  2. OMNITROPE [Suspect]
     Active Substance: SOMATROPIN
     Indication: NOONAN SYNDROME
     Dosage: 1 MG, QD
     Route: 058
     Dates: start: 20170119

REACTIONS (3)
  - Abdominal discomfort [Recovered/Resolved]
  - Injection site pain [Recovered/Resolved]
  - Abdominal pain [Recovered/Resolved]

NARRATIVE: CASE EVENT DATE: 20170119
